FAERS Safety Report 5238078-8 (Version None)
Quarter: 2007Q1

REPORT INFORMATION
  Report Type: 
  Country: None (occurrence: None)
  Receive Date: 20070215
  Receipt Date: 20070201
  Transmission Date: 20070707
  Serious: Yes (Hospitalization, Other)
  Sender: FDA-Public Use
  Company Number: PHBS2007RU01989

PATIENT
  Age: 18 Year
  Sex: Male

DRUGS (2)
  1. TRILEPTAL [Suspect]
     Indication: EPILEPSY
     Dosage: TITRATION FROM 150 TO 450 MG/DAY
  2. TRILEPTAL [Suspect]
     Dosage: 600 MG/DAY

REACTIONS (3)
  - AMNESIA [None]
  - CONFUSIONAL STATE [None]
  - EPILEPSY [None]
